FAERS Safety Report 17997646 (Version 12)
Quarter: 2021Q3

REPORT INFORMATION
  Report Type: Report from Study
  Country: US (occurrence: US)
  Receive Date: 20200708
  Receipt Date: 20210831
  Transmission Date: 20211014
  Serious: Yes (Life-Threatening, Hospitalization, Disabling)
  Sender: FDA-Public Use
  Company Number: US-CELGENEUS-USA-20200700184

PATIENT
  Age: 62 Year
  Sex: Male

DRUGS (187)
  1. OZANIMOD. [Suspect]
     Active Substance: OZANIMOD
     Route: 048
     Dates: start: 20200128, end: 20200420
  2. LOSARTAN. [Concomitant]
     Active Substance: LOSARTAN
     Indication: HYPERTENSION
     Dosage: 100 MILLIGRAM
     Route: 048
     Dates: start: 2008, end: 20200616
  3. INVOKANA [Concomitant]
     Active Substance: CANAGLIFLOZIN
     Indication: TYPE 2 DIABETES MELLITUS
     Dosage: 300 MILLIGRAM
     Route: 048
     Dates: start: 2015
  4. ACETAMINOPHEN. [Concomitant]
     Active Substance: ACETAMINOPHEN
     Indication: PAIN
     Dosage: 2600 MILLIGRAM
     Route: 048
     Dates: start: 20200604, end: 20200612
  5. WARFARIN [Concomitant]
     Active Substance: WARFARIN
     Indication: PERIPHERAL VASCULAR DISORDER
     Dosage: 3 MILLIGRAM
     Route: 048
     Dates: start: 2008
  6. VICTOZA [Concomitant]
     Active Substance: LIRAGLUTIDE
     Indication: TYPE 2 DIABETES MELLITUS
     Dosage: 1.8 OUNCE
     Route: 058
     Dates: start: 2017
  7. PREDNISONE. [Concomitant]
     Active Substance: PREDNISONE
     Indication: INFLAMMATORY BOWEL DISEASE
     Dosage: 20 MILLIGRAM
     Route: 048
     Dates: start: 20180417, end: 20181018
  8. PREDNISONE. [Concomitant]
     Active Substance: PREDNISONE
     Dosage: 7.5 MILLIGRAM
     Route: 048
     Dates: start: 20200423
  9. PREDNISONE. [Concomitant]
     Active Substance: PREDNISONE
     Dosage: 20 MILLIGRAM
     Route: 048
     Dates: start: 20200620, end: 20200627
  10. PREDNISONE. [Concomitant]
     Active Substance: PREDNISONE
     Dosage: 15 MILLIGRAM
     Route: 048
     Dates: start: 20200923, end: 202011
  11. INSULIN LISPRO [Concomitant]
     Active Substance: INSULIN LISPRO
     Dosage: 8 UNITS
     Route: 058
     Dates: start: 20200609, end: 20200706
  12. MAGNESIUM HYDROXIDE. [Concomitant]
     Active Substance: MAGNESIUM HYDROXIDE
     Indication: CONSTIPATION
  13. IOPAMIDOL [Concomitant]
     Active Substance: IOPAMIDOL
     Route: 041
     Dates: start: 20201214, end: 20201214
  14. FARXIGA [Concomitant]
     Active Substance: DAPAGLIFLOZIN PROPANEDIOL
     Indication: DIABETES MELLITUS
     Dosage: 10 MILLIGRAM
     Route: 048
     Dates: start: 20200114
  15. NACL [Concomitant]
     Active Substance: SODIUM CHLORIDE
     Dosage: 500 MILLILITER
     Route: 041
     Dates: start: 20200614, end: 20200614
  16. HEPARIN [Concomitant]
     Active Substance: HEPARIN SODIUM
     Dosage: 1800 UNITS
     Route: 041
     Dates: start: 20200607, end: 20200612
  17. INSULINE GLARGINE [Concomitant]
     Active Substance: INSULIN GLARGINE
     Dosage: 18 UNITS
     Route: 058
     Dates: start: 20200621, end: 20200623
  18. INSULIN REGULAR HUMAN [Concomitant]
     Indication: TYPE 2 DIABETES MELLITUS
     Dosage: 6 UNITS
     Route: 058
     Dates: start: 20200611, end: 20200616
  19. MORPHINE [Concomitant]
     Active Substance: MORPHINE
     Indication: PAIN
     Dosage: 30 MILLIGRAM
     Route: 048
     Dates: start: 20200623, end: 20200707
  20. MORPHINE [Concomitant]
     Active Substance: MORPHINE
     Route: 048
     Dates: start: 20200629, end: 20200827
  21. PANTOPRAZOLE [Concomitant]
     Active Substance: PANTOPRAZOLE
     Indication: GASTRIC ULCER
     Route: 041
     Dates: start: 20200608, end: 20200616
  22. PANTOPRAZOLE [Concomitant]
     Active Substance: PANTOPRAZOLE
     Route: 041
     Dates: start: 20201206, end: 20201208
  23. PANTOPRAZOLE [Concomitant]
     Active Substance: PANTOPRAZOLE
     Dosage: 80 MILLIGRAM
     Route: 048
     Dates: start: 20201208
  24. PIPERACILLIN/TAZOBACTAM [Concomitant]
     Active Substance: PIPERACILLIN SODIUM\TAZOBACTAM SODIUM
     Indication: INFECTION
     Dosage: 10.125 MILLIGRAM
     Route: 041
     Dates: start: 20200611, end: 20200619
  25. PIPERACILLIN/TAZOBACTAM [Concomitant]
     Active Substance: PIPERACILLIN SODIUM\TAZOBACTAM SODIUM
     Route: 041
     Dates: start: 20201206, end: 20201217
  26. DEXTROSE 5% NACL 0.45% [Concomitant]
     Indication: FLUID REPLACEMENT
     Dosage: 1500 MILLILITER
     Route: 041
     Dates: start: 20200619, end: 20200624
  27. ENOXAPARIN [Concomitant]
     Active Substance: ENOXAPARIN
     Indication: THROMBOSIS PROPHYLAXIS
     Dosage: 150 MILLIGRAM
     Route: 058
     Dates: start: 20200529, end: 20200602
  28. ACETAMINOPHEN. [Concomitant]
     Active Substance: ACETAMINOPHEN
     Route: 048
     Dates: start: 20200624, end: 20200707
  29. WARFARIN [Concomitant]
     Active Substance: WARFARIN
     Indication: ANTICOAGULANT THERAPY
     Dosage: 5 MILLIGRAM
     Route: 048
     Dates: start: 20200623, end: 20200623
  30. WARFARIN [Concomitant]
     Active Substance: WARFARIN
     Dosage: .5 MILLIGRAM
     Route: 048
     Dates: start: 20200704, end: 20200704
  31. WARFARIN [Concomitant]
     Active Substance: WARFARIN
     Dosage: 5 MILLIGRAM
     Route: 048
     Dates: start: 20201201, end: 20201211
  32. OXYCODONE [Concomitant]
     Active Substance: OXYCODONE
     Route: 048
     Dates: start: 20200604, end: 20200707
  33. ATORVASTATIN [Concomitant]
     Active Substance: ATORVASTATIN
     Indication: HYPERLIPIDAEMIA
     Dosage: 80 MILLIGRAM
     Route: 048
     Dates: start: 202003, end: 202006
  34. PREDNISONE. [Concomitant]
     Active Substance: PREDNISONE
     Dosage: 10 MILLIGRAM
     Route: 048
     Dates: start: 20190702, end: 20200128
  35. PREDNISONE. [Concomitant]
     Active Substance: PREDNISONE
     Dosage: 12.5 MILLIGRAM
     Route: 048
     Dates: start: 201905, end: 20190701
  36. PREDNISONE. [Concomitant]
     Active Substance: PREDNISONE
     Dosage: 12.5 MILLIGRAM
     Route: 048
     Dates: start: 202009, end: 20200922
  37. PREDNISONE. [Concomitant]
     Active Substance: PREDNISONE
     Dosage: 15 MILLIGRAM
     Route: 048
     Dates: start: 20201214, end: 20201220
  38. IODIXANOL. [Concomitant]
     Active Substance: IODIXANOL
     Indication: DIAGNOSTIC ASPIRATION
     Dosage: 33 MILLILITER
     Route: 041
     Dates: start: 20200603, end: 20200603
  39. LIDOCAINE PATCH [Concomitant]
     Active Substance: LIDOCAINE
     Indication: SIGMOIDOSCOPY
     Dosage: 60 MILLIGRAM
     Route: 041
     Dates: start: 20190813, end: 20190813
  40. LIDOCAINE PATCH [Concomitant]
     Active Substance: LIDOCAINE
     Indication: BACK PAIN
     Route: 023
     Dates: start: 20200603, end: 20200624
  41. LORATADINE. [Concomitant]
     Active Substance: LORATADINE
     Indication: ALLERGY PROPHYLAXIS
  42. NACL [Concomitant]
     Active Substance: SODIUM CHLORIDE
     Dosage: 1000 MILLILITRE
     Route: 041
     Dates: start: 20200611, end: 20200611
  43. CALCIUM GLUCONATE. [Concomitant]
     Active Substance: CALCIUM GLUCONATE
     Indication: MINERAL SUPPLEMENTATION
     Dosage: 2 MILLIGRAM
     Route: 041
     Dates: start: 20200614, end: 20200614
  44. GABAPENTIN. [Concomitant]
     Active Substance: GABAPENTIN
     Indication: NEURALGIA
     Dosage: 100 MILLIGRAM
     Route: 048
     Dates: start: 20200621, end: 20200622
  45. MORPHINE [Concomitant]
     Active Substance: MORPHINE
     Route: 041
     Dates: start: 20200629, end: 20200629
  46. ONDANSETRON [Concomitant]
     Active Substance: ONDANSETRON
     Indication: NAUSEA
     Route: 041
     Dates: start: 20201206, end: 20201206
  47. POTASSIUM CHLORIDE. [Concomitant]
     Active Substance: POTASSIUM CHLORIDE
     Indication: HYPOKALAEMIA
     Dosage: 40 MILLIEQUIVALENTS
     Route: 048
     Dates: start: 20200610, end: 20200610
  48. OZANIMOD. [Suspect]
     Active Substance: OZANIMOD
     Route: 048
     Dates: start: 20191104, end: 20200128
  49. LOSARTAN. [Concomitant]
     Active Substance: LOSARTAN
     Dosage: 50 MILLIGRAM
     Route: 048
     Dates: start: 20200617, end: 20200618
  50. LOSARTAN. [Concomitant]
     Active Substance: LOSARTAN
     Dosage: 100 MILLIGRAM
     Route: 048
     Dates: start: 20200619, end: 20200629
  51. WARFARIN [Concomitant]
     Active Substance: WARFARIN
     Dosage: 1 MILLIGRAM
     Route: 048
     Dates: start: 20200705, end: 20200706
  52. OXYCODONE [Concomitant]
     Active Substance: OXYCODONE
     Indication: ARTHRALGIA
     Dosage: 5?3.25 MG
     Route: 048
     Dates: start: 20181019
  53. OXYCODONE [Concomitant]
     Active Substance: OXYCODONE
     Route: 048
     Dates: start: 20200604, end: 20200622
  54. PREDNISONE. [Concomitant]
     Active Substance: PREDNISONE
     Dosage: 10 MILLIGRAM
     Route: 048
     Dates: start: 20181109, end: 20181211
  55. PREDNISONE. [Concomitant]
     Active Substance: PREDNISONE
     Dosage: 15 MILLIGRAM
     Route: 048
     Dates: start: 201904, end: 201905
  56. PREDNISONE. [Concomitant]
     Active Substance: PREDNISONE
     Dosage: 10 MILLIGRAM
     Route: 048
     Dates: start: 20201221
  57. LIDOCAINE PATCH [Concomitant]
     Active Substance: LIDOCAINE
     Indication: ARTHRALGIA
     Route: 061
     Dates: start: 202006
  58. PROPOFOL. [Concomitant]
     Active Substance: PROPOFOL
     Indication: COLONOSCOPY
     Dosage: 100 MILLIGRAM
     Route: 041
     Dates: start: 20190813, end: 20190813
  59. HEPARIN [Concomitant]
     Active Substance: HEPARIN SODIUM
     Dosage: 5000 UNITS
     Route: 041
     Dates: start: 20200603, end: 20200603
  60. HYDROCORTISONE. [Concomitant]
     Active Substance: HYDROCORTISONE
     Dosage: 50 MILLIGRAM
     Route: 061
     Dates: start: 20201206, end: 20201217
  61. INSULINE GLARGINE [Concomitant]
     Active Substance: INSULIN GLARGINE
     Indication: TYPE 2 DIABETES MELLITUS
     Dosage: 5 UNITS
     Route: 065
     Dates: start: 20200609, end: 20200609
  62. METHOCARBAMOL. [Concomitant]
     Active Substance: METHOCARBAMOL
     Route: 048
     Dates: start: 20200621, end: 20200707
  63. MORPHINE [Concomitant]
     Active Substance: MORPHINE
     Route: 041
     Dates: start: 20201206, end: 20201207
  64. POLYETHYLENE GLYCOL [Concomitant]
     Active Substance: POLYETHYLENE GLYCOLS
     Dosage: 17 GRAM
     Route: 048
     Dates: start: 20200629, end: 20200707
  65. POTASSIUM PHOSPHATE AND SODIUM PHOSPHATE [Concomitant]
     Indication: HYPOKALAEMIA
     Dosage: 2 PACKETS
     Route: 048
     Dates: start: 20200614, end: 20200614
  66. LACTATED RINGERS SOLUTION [Concomitant]
     Active Substance: CALCIUM CHLORIDE\POTASSIUM CHLORIDE\SODIUM CHLORIDE\SODIUM LACTATE
     Route: 041
     Dates: start: 20201206, end: 20201211
  67. ADENOSINE. [Concomitant]
     Active Substance: ADENOSINE
     Indication: CHEST PAIN
     Dosage: 46.3 MILLIGRAM
     Route: 041
     Dates: start: 20201210, end: 20201210
  68. METRONIDAZOLE. [Concomitant]
     Active Substance: METRONIDAZOLE
     Indication: SEPSIS
     Dosage: 500 MILLIGRAM
     Route: 041
     Dates: start: 20201206, end: 20201206
  69. CLOPIDOGREL [Concomitant]
     Active Substance: CLOPIDOGREL BISULFATE
     Indication: THROMBOSIS PROPHYLAXIS
     Route: 048
     Dates: start: 20200610
  70. OZANIMOD. [Suspect]
     Active Substance: OZANIMOD
     Route: 048
     Dates: start: 20210316, end: 20210603
  71. ASPIRIN. [Concomitant]
     Active Substance: ASPIRIN
     Indication: ARTHRITIS
     Dosage: 81 MILLIGRAM
     Route: 048
     Dates: start: 2008, end: 20210720
  72. WARFARIN [Concomitant]
     Active Substance: WARFARIN
     Dosage: 3 MILLIGRAM
     Route: 048
     Dates: start: 20201219
  73. PREDNISONE. [Concomitant]
     Active Substance: PREDNISONE
     Dosage: 5 MILLIGRAM
     Route: 048
     Dates: start: 20200213, end: 20200304
  74. PREDNISONE. [Concomitant]
     Active Substance: PREDNISONE
     Dosage: 15 MILLIGRAM
     Route: 048
     Dates: start: 20200728, end: 202009
  75. INSULIN LISPRO [Concomitant]
     Active Substance: INSULIN LISPRO
     Dosage: 7 UNITS
     Route: 058
     Dates: start: 20200623, end: 20200623
  76. KETOROLAC [Concomitant]
     Active Substance: KETOROLAC TROMETHAMINE
     Indication: PAIN
     Dosage: 45 MILLIGRAM
     Route: 041
     Dates: start: 20200619, end: 20200621
  77. LIDOCAINE PATCH [Concomitant]
     Active Substance: LIDOCAINE
     Indication: LOCAL ANAESTHESIA
     Route: 062
     Dates: start: 20200618, end: 20200707
  78. MAGNESIUM HYDROXIDE. [Concomitant]
     Active Substance: MAGNESIUM HYDROXIDE
     Indication: LAXATIVE SUPPORTIVE CARE
     Route: 048
     Dates: start: 20200606, end: 20200624
  79. IOPAMIDOL [Concomitant]
     Active Substance: IOPAMIDOL
     Indication: DIAGNOSTIC ASPIRATION
     Route: 041
     Dates: start: 20200607, end: 20200618
  80. NACL [Concomitant]
     Active Substance: SODIUM CHLORIDE
     Dosage: 1000 MILLILITER
     Route: 041
     Dates: start: 20200603, end: 20200607
  81. HYDROCORTISONE. [Concomitant]
     Active Substance: HYDROCORTISONE
     Dosage: 25 MILLIGRAM
     Route: 061
     Dates: start: 20200630, end: 20200706
  82. INSULINE GLARGINE [Concomitant]
     Active Substance: INSULIN GLARGINE
     Dosage: 10 UNITS
     Route: 058
     Dates: start: 20200610, end: 20200610
  83. MORPHINE [Concomitant]
     Active Substance: MORPHINE
     Indication: PAIN
     Dosage: 1 MILLIGRAM
     Route: 041
     Dates: start: 20200618, end: 20200618
  84. POLYETHYLENE GLYCOL [Concomitant]
     Active Substance: POLYETHYLENE GLYCOLS
     Indication: CONSTIPATION
     Dosage: 17 GRAM
     Route: 065
     Dates: start: 20200614, end: 20200616
  85. AMLODIPINE [Concomitant]
     Active Substance: AMLODIPINE BESYLATE
     Dosage: 10 MILLIGRAM
     Route: 048
     Dates: start: 20201213, end: 20201217
  86. DEXTROSE 5% NACL 0.45% [Concomitant]
     Indication: ISCHAEMIA
     Dosage: 1500 MILLILITER
     Route: 041
     Dates: start: 20200629, end: 20200701
  87. OZANIMOD. [Suspect]
     Active Substance: OZANIMOD
     Indication: COLITIS ULCERATIVE
     Route: 048
     Dates: start: 20180925, end: 20181029
  88. OZANIMOD. [Suspect]
     Active Substance: OZANIMOD
     Route: 048
     Dates: start: 20181207, end: 20190114
  89. OZANIMOD. [Suspect]
     Active Substance: OZANIMOD
     Route: 048
     Dates: start: 20210316, end: 20210603
  90. PREDNISONE. [Concomitant]
     Active Substance: PREDNISONE
     Dosage: 10 MILLIGRAM
     Route: 048
     Dates: start: 20181212, end: 201904
  91. COLCHICINE. [Concomitant]
     Active Substance: COLCHICINE
     Indication: CELLULITIS
     Dosage: 1.2 MILLIGRAM
     Route: 048
     Dates: start: 20200413
  92. INSULIN LISPRO [Concomitant]
     Active Substance: INSULIN LISPRO
     Indication: TYPE 2 DIABETES MELLITUS
     Route: 058
     Dates: start: 20200609, end: 20200609
  93. INSULIN LISPRO [Concomitant]
     Active Substance: INSULIN LISPRO
     Dosage: 16 UNITS
     Route: 058
     Dates: start: 20201206, end: 20201217
  94. NACL [Concomitant]
     Active Substance: SODIUM CHLORIDE
     Indication: ELECTROLYTE SUBSTITUTION THERAPY
     Dosage: 1000 MILLILITRE
     Route: 041
     Dates: start: 20200607, end: 20200607
  95. NACL [Concomitant]
     Active Substance: SODIUM CHLORIDE
     Route: 041
     Dates: start: 202012, end: 202012
  96. DIATRIZOATE MEGLUMINE [Concomitant]
     Active Substance: DIATRIZOATE MEGLUMINE
     Indication: PRODUCT USED FOR UNKNOWN INDICATION
     Dosage: 30 MILLILITER
     Route: 041
     Dates: start: 20200618, end: 20200618
  97. HEPARIN [Concomitant]
     Active Substance: HEPARIN SODIUM
     Dosage: 1000 UNITS
     Route: 041
     Dates: start: 20200604, end: 20200604
  98. INSULINE GLARGINE [Concomitant]
     Active Substance: INSULIN GLARGINE
     Dosage: 16 UNITS
     Route: 058
     Dates: start: 20200620, end: 20200620
  99. METHOCARBAMOL. [Concomitant]
     Active Substance: METHOCARBAMOL
     Indication: MUSCLE SPASMS
     Route: 048
     Dates: start: 20200617, end: 20200621
  100. MIDAZOLAM. [Concomitant]
     Active Substance: MIDAZOLAM
     Indication: ISCHAEMIA
     Route: 041
     Dates: start: 20200603, end: 20200604
  101. MORPHINE [Concomitant]
     Active Substance: MORPHINE
     Route: 041
     Dates: start: 20200629, end: 20200629
  102. MULTIVITAMIN [Concomitant]
     Active Substance: VITAMINS
     Indication: SUPPLEMENTATION THERAPY
     Route: 048
     Dates: start: 20200607, end: 20200707
  103. PIPERACILLIN/TAZOBACTAM [Concomitant]
     Active Substance: PIPERACILLIN SODIUM\TAZOBACTAM SODIUM
     Indication: SEPSIS
     Route: 041
     Dates: start: 20200629, end: 20200707
  104. LIDOCAINE. [Concomitant]
     Active Substance: LIDOCAINE
     Indication: ROUTINE HEALTH MAINTENANCE
     Route: 023
     Dates: start: 20200603, end: 20200624
  105. SENNA DOCUSATE [Concomitant]
     Indication: CONSTIPATION
     Route: 048
     Dates: start: 20200613, end: 20200618
  106. SENNA DOCUSATE [Concomitant]
     Dosage: 8.6 MILLIGRAM
     Route: 048
     Dates: start: 20200629, end: 20200706
  107. TAMSULOSIN [Concomitant]
     Active Substance: TAMSULOSIN
     Indication: URINARY RETENTION
     Dosage: .4 MILLIGRAM
     Route: 048
     Dates: start: 20200620, end: 20200629
  108. LACTATED RINGERS SOLUTION [Concomitant]
     Active Substance: CALCIUM CHLORIDE\POTASSIUM CHLORIDE\SODIUM CHLORIDE\SODIUM LACTATE
     Indication: FLUID REPLACEMENT
     Dosage: 250 MILLILITER
     Route: 041
     Dates: start: 20200629, end: 20200629
  109. AMOXICILLIN CLAVULANATE [Concomitant]
     Active Substance: AMOXICILLIN\CLAVULANIC ACID
     Indication: CHOLECYSTITIS ACUTE
     Dosage: 1750 MILLIGRAM
     Route: 048
     Dates: start: 20200703, end: 20200707
  110. AMLODIPINE [Concomitant]
     Active Substance: AMLODIPINE BESYLATE
     Indication: HYPERTENSION
     Dosage: 5 MILLIGRAM
     Route: 048
     Dates: start: 20201211, end: 20201212
  111. HUMALOG [Concomitant]
     Active Substance: INSULIN LISPRO
     Indication: DIABETES MELLITUS
     Dosage: 50 IU (INTERNATIONAL UNIT)
     Route: 058
     Dates: start: 20180911, end: 201909
  112. OZANIMOD. [Suspect]
     Active Substance: OZANIMOD
     Route: 048
     Dates: start: 20190225, end: 20190520
  113. OZANIMOD. [Suspect]
     Active Substance: OZANIMOD
     Route: 048
     Dates: start: 20190813, end: 20191104
  114. OZANIMOD. [Suspect]
     Active Substance: OZANIMOD
     Route: 048
     Dates: start: 20201228, end: 20210316
  115. ACETAMINOPHEN. [Concomitant]
     Active Substance: ACETAMINOPHEN
     Indication: ARTHRITIS
     Dosage: 500 MILLIGRAM
     Route: 048
     Dates: start: 2008
  116. WARFARIN [Concomitant]
     Active Substance: WARFARIN
     Dosage: 3 MILLIGRAM
     Route: 048
     Dates: start: 20200624, end: 20200626
  117. WARFARIN [Concomitant]
     Active Substance: WARFARIN
     Dosage: 3 MILLIGRAM
     Route: 048
     Dates: start: 20200628, end: 20200628
  118. OXYCODONE [Concomitant]
     Active Substance: OXYCODONE
     Route: 048
     Dates: start: 20200629, end: 20200629
  119. OZEMPIC [Concomitant]
     Active Substance: SEMAGLUTIDE
     Indication: DIABETES MELLITUS
     Dosage: .25 MILLIGRAM
     Route: 030
     Dates: start: 20200114
  120. CEPHALEXIN. [Concomitant]
     Active Substance: CEPHALEXIN
     Indication: LOCALISED INFECTION
     Dosage: 1000 MILLIGRAM
     Route: 048
     Dates: start: 20200413
  121. PREDNISONE. [Concomitant]
     Active Substance: PREDNISONE
     Dosage: 2.5 MILLIGRAM
     Route: 048
     Dates: start: 20200305, end: 20200420
  122. PREDNISONE. [Concomitant]
     Active Substance: PREDNISONE
     Dosage: 30 MILLIGRAM
     Route: 048
     Dates: start: 202011, end: 20201122
  123. PREDNISONE. [Concomitant]
     Active Substance: PREDNISONE
     Dosage: 25 MILLIGRAM
     Route: 048
     Dates: start: 20201130, end: 20201213
  124. INSULIN LISPRO [Concomitant]
     Active Substance: INSULIN LISPRO
     Dosage: 2 UNITS
     Route: 058
     Dates: start: 20200609, end: 20200609
  125. INSULIN LISPRO [Concomitant]
     Active Substance: INSULIN LISPRO
     Dosage: 3 UNITS
     Route: 058
     Dates: start: 20200607, end: 20200610
  126. INSULIN LISPRO [Concomitant]
     Active Substance: INSULIN LISPRO
     Dosage: 4 UNITS
     Route: 058
     Dates: start: 20200608, end: 20200608
  127. LABETALOL [Concomitant]
     Active Substance: LABETALOL\LABETALOL HYDROCHLORIDE
     Route: 041
     Dates: start: 20200603, end: 20200610
  128. LORATADINE. [Concomitant]
     Active Substance: LORATADINE
     Indication: ANTIALLERGIC THERAPY
     Route: 048
     Dates: start: 20200610, end: 20200610
  129. PROPOFOL. [Concomitant]
     Active Substance: PROPOFOL
     Indication: SIGMOIDOSCOPY
     Dosage: 6.16 MILLIGRAM
     Route: 041
     Dates: start: 20190219, end: 20190219
  130. DOCUSATE SODIUM. [Concomitant]
     Active Substance: DOCUSATE SODIUM
     Indication: FAECES SOFT
     Dosage: 100 MILLIGRAM
     Route: 048
     Dates: start: 20200606, end: 20200624
  131. HYDROCORTISONE. [Concomitant]
     Active Substance: HYDROCORTISONE
     Indication: PAIN
     Dosage: 50 MILLIGRAM
     Route: 041
     Dates: start: 20200611, end: 20200616
  132. INSULINE GLARGINE [Concomitant]
     Active Substance: INSULIN GLARGINE
     Dosage: 18 UNITS
     Route: 058
     Dates: start: 20200625, end: 20200706
  133. DEXTROSE. [Concomitant]
     Active Substance: DEXTROSE
     Indication: FLUID REPLACEMENT
     Route: 041
     Dates: start: 20200616, end: 20200624
  134. METOCLOPRAMIDE. [Concomitant]
     Active Substance: METOCLOPRAMIDE
     Indication: INFLAMMATORY BOWEL DISEASE
     Route: 041
     Dates: start: 20200604, end: 20200608
  135. LIDOCAINE. [Concomitant]
     Active Substance: LIDOCAINE
     Route: 023
     Dates: start: 20200701, end: 20200701
  136. BISACODYL. [Concomitant]
     Active Substance: BISACODYL
     Route: 048
     Dates: start: 20201208, end: 20201213
  137. LACTATED RINGERS SOLUTION [Concomitant]
     Active Substance: CALCIUM CHLORIDE\POTASSIUM CHLORIDE\SODIUM CHLORIDE\SODIUM LACTATE
     Dosage: 1000 MILLILITER
     Route: 041
     Dates: start: 20200629, end: 20200702
  138. CEFTRIAXONE. [Concomitant]
     Active Substance: CEFTRIAXONE
     Indication: SEPSIS
     Dosage: 2 GRAM
     Route: 041
     Dates: start: 20201206, end: 20201206
  139. CEFTRIAXONE. [Concomitant]
     Active Substance: CEFTRIAXONE
     Indication: CHOLECYSTITIS ACUTE
  140. CLOPIDOGREL [Concomitant]
     Active Substance: CLOPIDOGREL BISULFATE
     Indication: CHOLECYSTITIS ACUTE
  141. OZANIMOD. [Suspect]
     Active Substance: OZANIMOD
     Route: 048
     Dates: start: 20190114, end: 20190225
  142. LOSARTAN. [Concomitant]
     Active Substance: LOSARTAN
     Dosage: 25 MILLIGRAM
     Route: 048
     Dates: start: 20200630, end: 20200704
  143. LOSARTAN. [Concomitant]
     Active Substance: LOSARTAN
     Dosage: 50 MILLIGRAM
     Route: 048
     Dates: start: 20200723
  144. ACETAMINOPHEN. [Concomitant]
     Active Substance: ACETAMINOPHEN
     Route: 048
     Dates: start: 20200626, end: 20200629
  145. WARFARIN [Concomitant]
     Active Substance: WARFARIN
     Indication: THROMBOSIS PROPHYLAXIS
     Dosage: 2 MILLIGRAM
     Route: 048
     Dates: start: 20200627, end: 20200627
  146. NOVOLOG [Concomitant]
     Active Substance: INSULIN ASPART
     Indication: DIABETES MELLITUS
     Dosage: 1 INJECTION
     Route: 030
     Dates: start: 201909
  147. PREDNISONE. [Concomitant]
     Active Substance: PREDNISONE
     Dosage: 7.5 MILLIGRAM
     Route: 048
     Dates: start: 20200129, end: 20200212
  148. INSULIN LISPRO [Concomitant]
     Active Substance: INSULIN LISPRO
     Dosage: 6 UNITS
     Route: 058
     Dates: start: 20200624, end: 20200628
  149. IODIXANOL. [Concomitant]
     Active Substance: IODIXANOL
     Route: 041
     Dates: start: 20200604, end: 20200604
  150. LABETALOL [Concomitant]
     Active Substance: LABETALOL\LABETALOL HYDROCHLORIDE
     Indication: HYPERTENSION
     Route: 041
     Dates: start: 20200611, end: 20200611
  151. LORATADINE. [Concomitant]
     Active Substance: LORATADINE
     Indication: ISCHAEMIA
  152. NACL [Concomitant]
     Active Substance: SODIUM CHLORIDE
     Route: 041
     Dates: start: 20201206, end: 20201208
  153. GABAPENTIN. [Concomitant]
     Active Substance: GABAPENTIN
     Dosage: 900 MILLIGRAM
     Route: 048
     Dates: start: 20200623
  154. HEPARIN [Concomitant]
     Active Substance: HEPARIN SODIUM
     Indication: THROMBOSIS PROPHYLAXIS
     Route: 041
     Dates: start: 20200602, end: 20200603
  155. MIDAZOLAM. [Concomitant]
     Active Substance: MIDAZOLAM
     Route: 041
     Dates: start: 20200611, end: 20200616
  156. MORPHINE [Concomitant]
     Active Substance: MORPHINE
     Indication: BACK PAIN
     Route: 041
     Dates: start: 20200616, end: 20200619
  157. PANTOPRAZOLE [Concomitant]
     Active Substance: PANTOPRAZOLE
     Indication: INFLAMMATORY BOWEL DISEASE
     Dosage: 80 MILLIGRAM
     Route: 048
     Dates: start: 20200616
  158. POTASSIUM CHLORIDE. [Concomitant]
     Active Substance: POTASSIUM CHLORIDE
     Dosage: 40 MILLIEQUIVALENTS
     Route: 048
     Dates: start: 20201209, end: 20201217
  159. AMOXICILLIN CLAVULANATE [Concomitant]
     Active Substance: AMOXICILLIN\CLAVULANIC ACID
     Dosage: 875?125 MG
     Route: 048
     Dates: start: 20201218, end: 20201225
  160. METRONIDAZOLE. [Concomitant]
     Active Substance: METRONIDAZOLE
     Indication: CHOLECYSTITIS ACUTE
  161. OZANIMOD. [Suspect]
     Active Substance: OZANIMOD
     Route: 048
     Dates: start: 20190520, end: 20190813
  162. OZANIMOD. [Suspect]
     Active Substance: OZANIMOD
     Route: 048
     Dates: start: 20200420, end: 20200727
  163. OZANIMOD. [Suspect]
     Active Substance: OZANIMOD
     Route: 048
     Dates: start: 20201012, end: 20201228
  164. CHOLECYSTOKININ [Concomitant]
     Active Substance: CHOLECYSTOKININ
     Indication: PRODUCT USED FOR UNKNOWN INDICATION
     Route: 041
  165. LOSARTAN. [Concomitant]
     Active Substance: LOSARTAN
     Route: 048
     Dates: start: 20200617, end: 20200617
  166. WARFARIN [Concomitant]
     Active Substance: WARFARIN
     Dosage: 1 MILLIGRAM
     Route: 048
     Dates: start: 20200702, end: 20200702
  167. PREDNISONE. [Concomitant]
     Active Substance: PREDNISONE
     Dosage: 12.5 MILLIGRAM
     Route: 048
     Dates: start: 20200619, end: 20200619
  168. COLCHICINE. [Concomitant]
     Active Substance: COLCHICINE
     Indication: GOUT
     Dosage: 1.2 MILLIGRAM
     Route: 048
     Dates: start: 20200403, end: 20200413
  169. INSULIN LISPRO [Concomitant]
     Active Substance: INSULIN LISPRO
     Dosage: 6 UNITS
     Route: 058
     Dates: start: 20200607, end: 20200705
  170. KETOROLAC [Concomitant]
     Active Substance: KETOROLAC TROMETHAMINE
     Indication: ISCHAEMIA
  171. LACTOBACILLUS [Concomitant]
     Active Substance: LACTOBACILLUS ACIDOPHILUS
     Indication: PROBIOTIC THERAPY
     Route: 048
     Dates: start: 20200619, end: 20200707
  172. IOPAMIDOL [Concomitant]
     Active Substance: IOPAMIDOL
     Route: 041
     Dates: start: 20200629, end: 20200629
  173. NACL [Concomitant]
     Active Substance: SODIUM CHLORIDE
     Dosage: 500 MILLILITER
     Route: 041
     Dates: start: 20200629, end: 20200630
  174. EPINEPHRINE. [Concomitant]
     Active Substance: EPINEPHRINE
     Indication: CARDIAC ARREST
     Dosage: 1 MILLIGRAM
     Route: 041
     Dates: start: 20200611, end: 20200611
  175. HEPARIN [Concomitant]
     Active Substance: HEPARIN SODIUM
     Dosage: 8000 UNITS
     Route: 041
     Dates: start: 20200611, end: 20200611
  176. HYDROCORTISONE. [Concomitant]
     Active Substance: HYDROCORTISONE
     Indication: PRURITUS
     Dosage: 2.5 PERCENT
     Route: 061
     Dates: start: 20200623, end: 20200707
  177. INSULINE GLARGINE [Concomitant]
     Active Substance: INSULIN GLARGINE
     Dosage: 12 UNITS
     Route: 058
     Dates: start: 20200611, end: 20200618
  178. DEXTROSE. [Concomitant]
     Active Substance: DEXTROSE
     Route: 041
     Dates: start: 20200629, end: 20200701
  179. MIDAZOLAM. [Concomitant]
     Active Substance: MIDAZOLAM
     Route: 041
     Dates: start: 20201211, end: 20201211
  180. ONDANSETRON [Concomitant]
     Active Substance: ONDANSETRON
     Indication: NAUSEA
     Route: 048
     Dates: start: 20200604, end: 20200629
  181. POLYETHYLENE GLYCOL [Concomitant]
     Active Substance: POLYETHYLENE GLYCOLS
     Dosage: 17 GRAM
     Route: 065
     Dates: start: 20200620, end: 20200707
  182. SODIUM HYPOCHLORITE [Concomitant]
     Active Substance: SODIUM HYPOCHLORITE
     Indication: INFECTION PROPHYLAXIS
     Route: 062
     Dates: start: 20200618, end: 20200618
  183. BISACODYL. [Concomitant]
     Active Substance: BISACODYL
     Indication: CONSTIPATION
     Route: 054
     Dates: start: 20200629, end: 20200629
  184. NYSTATIN. [Concomitant]
     Active Substance: NYSTATIN
     Indication: FUNGAL INFECTION
     Dosage: 5 MILLILITER
     Route: 048
     Dates: start: 20200702, end: 20200707
  185. SINCALIDE. [Concomitant]
     Active Substance: SINCALIDE
     Indication: RADIOTHERAPY
     Dosage: .83 MICROGRAM
     Route: 041
     Dates: start: 20200630, end: 20200630
  186. MAGNESIUM CITRATE. [Concomitant]
     Active Substance: MAGNESIUM CITRATE
     Indication: BOWEL PREPARATION
     Route: 065
     Dates: start: 20180916, end: 20180916
  187. ENOXAPARIN [Concomitant]
     Active Substance: ENOXAPARIN
     Dosage: 10 MILLIGRAM
     Route: 048
     Dates: start: 20201213, end: 20201217

REACTIONS (3)
  - Sepsis [Recovered/Resolved]
  - Cholecystitis acute [Recovered/Resolved]
  - Peripheral ischaemia [Recovered/Resolved]

NARRATIVE: CASE EVENT DATE: 20200603
